FAERS Safety Report 19350293 (Version 2)
Quarter: 2021Q3

REPORT INFORMATION
  Report Type: Spontaneous
  Country: GB (occurrence: GB)
  Receive Date: 20210531
  Receipt Date: 20210702
  Transmission Date: 20211014
  Serious: Yes (Hospitalization, Other)
  Sender: FDA-Public Use
  Company Number: GB-JNJFOC-20210545849

PATIENT
  Age: 9 Year
  Sex: Male

DRUGS (3)
  1. LYRINEL [Suspect]
     Active Substance: OXYBUTYNIN
     Indication: HYPERTONIC BLADDER
     Dosage: 5MG X TWICE DAILY
     Route: 048
     Dates: start: 20191001, end: 20200401
  2. SOLIFENACIN SUCCINATE. [Suspect]
     Active Substance: SOLIFENACIN SUCCINATE
     Indication: HYPERTONIC BLADDER
     Route: 048
     Dates: start: 20210201, end: 20210504
  3. MELATONIN [Concomitant]
     Active Substance: MELATONIN
     Indication: ILL-DEFINED DISORDER
     Route: 065

REACTIONS (5)
  - Depressed mood [Unknown]
  - Panic disorder [Unknown]
  - Panic disorder [Recovered/Resolved]
  - Nervousness [Unknown]
  - Anxiety [Recovering/Resolving]

NARRATIVE: CASE EVENT DATE: 20191015
